FAERS Safety Report 25336763 (Version 2)
Quarter: 2025Q3

REPORT INFORMATION
  Report Type: Report from Study
  Country: US (occurrence: US)
  Receive Date: 20250520
  Receipt Date: 20250701
  Transmission Date: 20251021
  Serious: Yes (Hospitalization)
  Sender: ABBVIE
  Company Number: US-ABBVIE-6284329

PATIENT
  Age: 67 Year
  Sex: Male

DRUGS (2)
  1. RINVOQ [Suspect]
     Active Substance: UPADACITINIB
     Indication: Dermatitis atopic
     Route: 048
     Dates: start: 20250312, end: 20250509
  2. METHOTREXATE [Concomitant]
     Active Substance: METHOTREXATE
     Indication: Product used for unknown indication

REACTIONS (8)
  - Skin infection [Unknown]
  - Staphylococcal infection [Recovered/Resolved]
  - Acne [Unknown]
  - Erythema [Not Recovered/Not Resolved]
  - Skin induration [Not Recovered/Not Resolved]
  - Skin irritation [Unknown]
  - Pain of skin [Unknown]
  - Mass [Unknown]

NARRATIVE: CASE EVENT DATE: 20250101
